FAERS Safety Report 15865318 (Version 5)
Quarter: 2025Q3

REPORT INFORMATION
  Report Type: Spontaneous
  Country: EU (occurrence: EU)
  Receive Date: 20190124
  Receipt Date: 20250731
  Transmission Date: 20251020
  Serious: Yes (Other)
  Sender: AUROBINDO
  Company Number: EU-AUROBINDO-AUR-APL-2019-002786

PATIENT
  Age: 67 Year
  Sex: Female

DRUGS (8)
  1. ESOMEPRAZOLE [Suspect]
     Active Substance: ESOMEPRAZOLE
     Indication: POEMS syndrome
     Route: 065
     Dates: start: 201703
  2. VALACYCLOVIR HYDROCHLORIDE [Suspect]
     Active Substance: VALACYCLOVIR HYDROCHLORIDE
     Indication: POEMS syndrome
     Route: 041
  3. REVLIMID [Suspect]
     Active Substance: LENALIDOMIDE
     Indication: POEMS syndrome
     Route: 048
     Dates: start: 2017
  4. ACYCLOVIR [Suspect]
     Active Substance: ACYCLOVIR
     Indication: POEMS syndrome
     Route: 065
  5. AMITRIPTYLINE [Suspect]
     Active Substance: AMITRIPTYLINE
     Indication: POEMS syndrome
     Route: 065
     Dates: start: 2017
  6. COTRIMOXAZOLE [Suspect]
     Active Substance: SULFAMETHOXAZOLE\TRIMETHOPRIM
     Indication: POEMS syndrome
     Route: 065
     Dates: start: 201703
  7. TOLODODEKIN ALFA [Suspect]
     Active Substance: TOLODODEKIN ALFA
     Indication: POEMS syndrome
     Route: 041
  8. PREGABALIN [Suspect]
     Active Substance: PREGABALIN
     Indication: POEMS syndrome
     Route: 065

REACTIONS (8)
  - Drug reaction with eosinophilia and systemic symptoms [Unknown]
  - Hepatic function abnormal [Unknown]
  - Pyrexia [Unknown]
  - Pruritus [Unknown]
  - Dermatitis exfoliative generalised [Unknown]
  - Erythema [Unknown]
  - Product use in unapproved indication [Unknown]
  - Off label use [Unknown]

NARRATIVE: CASE EVENT DATE: 20170401
